FAERS Safety Report 18601574 (Version 2)
Quarter: 2022Q1

REPORT INFORMATION
  Report Type: Report from Study
  Country: US (occurrence: US)
  Receive Date: 20201210
  Receipt Date: 20220302
  Transmission Date: 20220423
  Serious: Yes (Other)
  Sender: FDA-Public Use
  Company Number: US-TAKEDA-2020TUS054194

PATIENT
  Sex: Female

DRUGS (9)
  1. PARATHYROID HORMONE [Suspect]
     Active Substance: PARATHYROID HORMONE
     Indication: Post procedural hypoparathyroidism
     Dosage: 50 MICROGRAM, QD
     Route: 058
     Dates: start: 20200712
  2. PARATHYROID HORMONE [Suspect]
     Active Substance: PARATHYROID HORMONE
     Indication: Post procedural hypoparathyroidism
     Dosage: 50 MICROGRAM, QD
     Route: 058
     Dates: start: 20200712
  3. PARATHYROID HORMONE [Suspect]
     Active Substance: PARATHYROID HORMONE
     Indication: Post procedural hypoparathyroidism
     Dosage: 50 MICROGRAM, QD
     Route: 058
     Dates: start: 20200712
  4. PARATHYROID HORMONE [Suspect]
     Active Substance: PARATHYROID HORMONE
     Dosage: 75 MICROGRAM, QD
     Route: 058
  5. PARATHYROID HORMONE [Suspect]
     Active Substance: PARATHYROID HORMONE
     Dosage: 75 MICROGRAM, QD
     Route: 058
  6. PARATHYROID HORMONE [Suspect]
     Active Substance: PARATHYROID HORMONE
     Dosage: 75 MICROGRAM, QD
     Route: 058
  7. CALCITRIOL [Concomitant]
     Active Substance: CALCITRIOL
     Route: 065
  8. CALCIUM [Concomitant]
     Active Substance: CALCIUM
     Route: 065
  9. HYDROCHLOROTHIAZIDE [Concomitant]
     Active Substance: HYDROCHLOROTHIAZIDE
     Route: 065

REACTIONS (2)
  - Hypocalcaemia [Unknown]
  - Recalled product [Unknown]
